FAERS Safety Report 21358011 (Version 1)
Quarter: 2022Q3

REPORT INFORMATION
  Report Type: Report from Study
  Country: TR (occurrence: TR)
  Receive Date: 20220921
  Receipt Date: 20220921
  Transmission Date: 20221027
  Serious: Yes (Other)
  Sender: FDA-Public Use
  Company Number: TR-TEVA-2022-TR-2054057

PATIENT
  Age: 25 Year
  Sex: Female

DRUGS (1)
  1. COPAXONE [Suspect]
     Active Substance: GLATIRAMER ACETATE
     Indication: Multiple sclerosis
     Route: 058
     Dates: start: 20210301, end: 20220817

REACTIONS (1)
  - Tuberculosis [Recovering/Resolving]

NARRATIVE: CASE EVENT DATE: 20220627
